FAERS Safety Report 15226379 (Version 1)
Quarter: 2018Q3

REPORT INFORMATION
  Report Type: Spontaneous
  Country: US (occurrence: US)
  Receive Date: 20180801
  Receipt Date: 20180801
  Transmission Date: 20181010
  Serious: No
  Sender: FDA-Public Use
  Company Number: US-ASTRAZENECA-2018SE86565

PATIENT
  Age: 74 Year
  Sex: Female
  Weight: 78 kg

DRUGS (7)
  1. PULMICORT FLEXHALER [Suspect]
     Active Substance: BUDESONIDE
     Indication: CHRONIC OBSTRUCTIVE PULMONARY DISEASE
     Dosage: 180UG/INHAL TWO TIMES A DAY
     Route: 055
     Dates: start: 2010
  2. PULMICORT FLEXHALER [Suspect]
     Active Substance: BUDESONIDE
     Indication: CHRONIC OBSTRUCTIVE PULMONARY DISEASE
     Dosage: 180UG/INHAL TWO TIMES A DAY
     Route: 055
     Dates: start: 20180517
  3. PULMICORT FLEXHALER [Suspect]
     Active Substance: BUDESONIDE
     Indication: ASTHMA
     Dosage: 180UG/INHAL TWO TIMES A DAY
     Route: 055
     Dates: start: 20180517
  4. BROVANA [Concomitant]
     Active Substance: ARFORMOTEROL TARTRATE
     Indication: ASTHMA
     Route: 055
     Dates: start: 2013
  5. VENTOLIN [Concomitant]
     Active Substance: ALBUTEROL SULFATE
     Indication: DRUG THERAPY
     Dosage: AS REQUIRED
     Route: 055
     Dates: start: 1998
  6. PULMICORT FLEXHALER [Suspect]
     Active Substance: BUDESONIDE
     Indication: ASTHMA
     Dosage: 180UG/INHAL TWO TIMES A DAY
     Route: 055
     Dates: start: 2010
  7. BROVANA [Concomitant]
     Active Substance: ARFORMOTEROL TARTRATE
     Indication: CHRONIC OBSTRUCTIVE PULMONARY DISEASE
     Route: 055
     Dates: start: 2013

REACTIONS (5)
  - Off label use [Unknown]
  - Wheezing [Recovered/Resolved]
  - Intentional product misuse [Unknown]
  - Product use issue [Recovered/Resolved]
  - Product quality issue [Unknown]

NARRATIVE: CASE EVENT DATE: 2013
